FAERS Safety Report 5422778-0 (Version None)
Quarter: 2007Q3

REPORT INFORMATION
  Report Type: 
  Country: None (occurrence: None)
  Receive Date: 20070822
  Receipt Date: 20070811
  Transmission Date: 20080115
  Serious: Yes (Hospitalization, Other)
  Sender: FDA-Public Use
  Company Number: US-PFIZER INC-2007067678

PATIENT
  Sex: Female
  Weight: 72.6 kg

DRUGS (6)
  1. CHANTIX [Suspect]
     Indication: SMOKING CESSATION THERAPY
     Route: 048
     Dates: start: 20070801, end: 20070801
  2. ATIVAN [Concomitant]
     Route: 048
  3. POTASSIUM CHLORIDE [Concomitant]
     Route: 048
  4. FLEXERIL [Concomitant]
     Route: 048
  5. VICODIN [Concomitant]
     Route: 048
  6. TRILAFON [Concomitant]
     Route: 048

REACTIONS (4)
  - CARDIAC DISORDER [None]
  - MALAISE [None]
  - PALPITATIONS [None]
  - PANIC ATTACK [None]
